FAERS Safety Report 8193168-5 (Version None)
Quarter: 2012Q1

REPORT INFORMATION
  Report Type: 
  Country: None (occurrence: None)
  Receive Date: 20120221
  Receipt Date: 20111118
  Transmission Date: 20120608
  Serious: No
  Sender: FDA-Public Use
  Company Number: 034347

PATIENT
  Sex: Female

DRUGS (2)
  1. NORTRIPTYLINE HCL [Concomitant]
  2. LACOSAMIDE [Suspect]
     Dosage: SEE IMAGE
     Dates: start: 20110501

REACTIONS (2)
  - DIZZINESS [None]
  - SKIN BURNING SENSATION [None]
